FAERS Safety Report 9464960 (Version 1)
Quarter: 2013Q3

REPORT INFORMATION
  Report Type: Spontaneous
  Country: FR (occurrence: FR)
  Receive Date: 20130819
  Receipt Date: 20130819
  Transmission Date: 20140515
  Serious: Yes (Hospitalization)
  Sender: FDA-Public Use
  Company Number: FR-MYLANLABS-2013S1017439

PATIENT
  Age: 66 Year
  Sex: Male

DRUGS (7)
  1. METHOTREXATE [Suspect]
     Indication: B-CELL LYMPHOMA
     Route: 042
     Dates: start: 20130720, end: 20130720
  2. METHOTREXATE [Suspect]
     Indication: B-CELL LYMPHOMA
     Route: 042
     Dates: start: 20130720, end: 20130720
  3. ROCEPHINE [Suspect]
     Indication: PRODUCT USED FOR UNKNOWN INDICATION
     Route: 048
     Dates: start: 20130719, end: 20130720
  4. INEXIUM [Suspect]
  5. KEPPRA [Concomitant]
  6. SEROPLEX [Concomitant]
  7. MEDROL [Concomitant]

REACTIONS (2)
  - Chemotherapeutic drug level above therapeutic [Recovered/Resolved]
  - Renal failure acute [Recovered/Resolved]
